FAERS Safety Report 5057024-3 (Version None)
Quarter: 2006Q2

REPORT INFORMATION
  Report Type: 
  Country: None (occurrence: None)
  Receive Date: 20060622
  Receipt Date: 20050815
  Transmission Date: 20061013
  Serious: Yes (Hospitalization)
  Sender: FDA-Public Use
  Company Number: US-JNJFOC-20050804779

PATIENT
  Age: 41 Year
  Sex: Female
  Weight: 104.3273 kg

DRUGS (4)
  1. DURAGESIC-100 [Suspect]
     Indication: PAIN
     Dosage: SEE IMAGE
     Route: 062
     Dates: start: 20040101, end: 20050531
  2. DURAGESIC-100 [Suspect]
     Indication: PAIN
     Dosage: SEE IMAGE
     Route: 062
     Dates: start: 20050601
  3. PERCOCET [Concomitant]
  4. MYLAN FENTANYL TRANSDERMAL SYSTEM (FENTANYL) PATCH [Concomitant]

REACTIONS (5)
  - HYPOVENTILATION [None]
  - ILL-DEFINED DISORDER [None]
  - INCONTINENCE [None]
  - SOMNOLENCE [None]
  - TACHYCARDIA [None]
